FAERS Safety Report 9325812 (Version 1)
Quarter: 2013Q2

REPORT INFORMATION
  Report Type: Spontaneous
  Country: CA (occurrence: CA)
  Receive Date: 20130604
  Receipt Date: 20130604
  Transmission Date: 20140414
  Serious: Yes (Other)
  Sender: FDA-Public Use
  Company Number: CA-TEVA-409682USA

PATIENT
  Age: 28 Year
  Sex: Female
  Weight: 80 kg

DRUGS (6)
  1. CLARITHROMYCIN [Suspect]
     Dosage: 1000 MILLIGRAM DAILY;
     Route: 048
  2. APO-SALVENT [Concomitant]
  3. APRI 28 [Concomitant]
  4. ARTHROTEC 75 [Concomitant]
  5. NICODERM 21 MG [Concomitant]
  6. QVAR [Concomitant]
     Dosage: METERED DOSE (AEROSOL)

REACTIONS (3)
  - Abnormal dreams [Unknown]
  - Amnesia [Unknown]
  - Paranoia [Unknown]
